FAERS Safety Report 7111848-7 (Version None)
Quarter: 2010Q4

REPORT INFORMATION
  Report Type: 
  Country: None (occurrence: None)
  Receive Date: 20101119
  Receipt Date: 20101112
  Transmission Date: 20110411
  Serious: No
  Sender: FDA-Public Use
  Company Number: US-BIOGENIDEC-2010BI012709

PATIENT
  Age: 55 Year
  Sex: Male

DRUGS (1)
  1. TYSABRI [Suspect]
     Indication: MULTIPLE SCLEROSIS
     Route: 042
     Dates: start: 20080813

REACTIONS (6)
  - DRUG EFFECT DECREASED [None]
  - FATIGUE [None]
  - HERPES ZOSTER [None]
  - MUSCULAR WEAKNESS [None]
  - NASOPHARYNGITIS [None]
  - RASH [None]
